FAERS Safety Report 8446553-8 (Version None)
Quarter: 2012Q2

REPORT INFORMATION
  Report Type: 
  Country: None (occurrence: None)
  Receive Date: 20120618
  Receipt Date: 20120604
  Transmission Date: 20120825
  Serious: Yes (Other)
  Sender: FDA-Public Use
  Company Number: CHPA2012US011872

PATIENT
  Sex: Female

DRUGS (2)
  1. IMITREX [Concomitant]
     Indication: HEADACHE
  2. EXCEDRIN EXTRA STRENGTH TABLETS [Suspect]
     Indication: HEADACHE
     Dosage: 2 DF, QD
     Route: 048
     Dates: start: 19810101

REACTIONS (4)
  - BASEDOW'S DISEASE [None]
  - INCORRECT DRUG ADMINISTRATION DURATION [None]
  - ANAEMIA [None]
  - BLOOD TEST ABNORMAL [None]
